FAERS Safety Report 10102949 (Version 1)
Quarter: 2014Q2

REPORT INFORMATION
  Report Type: Spontaneous
  Country: US (occurrence: US)
  Receive Date: 20140424
  Receipt Date: 20140424
  Transmission Date: 20141212
  Serious: Yes (Other)
  Sender: FDA-Public Use
  Company Number: US-BRISTOL-MYERS SQUIBB COMPANY-19985118

PATIENT
  Age: 82 Year
  Sex: Female
  Weight: 79.36 kg

DRUGS (7)
  1. ELIQUIS [Suspect]
     Dosage: TAB
     Dates: start: 201309
  2. ASPIRIN [Suspect]
  3. ACTONEL [Concomitant]
  4. METOPROLOL [Concomitant]
  5. MICARDIS [Concomitant]
  6. SYNTHROID [Concomitant]
  7. FUROSEMIDE [Concomitant]

REACTIONS (1)
  - Gastrointestinal haemorrhage [Recovered/Resolved]
